FAERS Safety Report 12116385 (Version 1)
Quarter: 2016Q1

REPORT INFORMATION
  Report Type: Other
  Country: US (occurrence: DE)
  Receive Date: 20160225
  Receipt Date: 20160225
  Transmission Date: 20160526
  Serious: No
  Sender: FDA-Public Use
  Company Number: DE-BRECKENRIDGE PHARMACEUTICAL, INC.-1048386

PATIENT
  Age: 15 Year
  Sex: Female

DRUGS (1)
  1. REPAGLINIDE. [Suspect]
     Active Substance: REPAGLINIDE

REACTIONS (7)
  - Suicide attempt [Recovered/Resolved]
  - Nausea [None]
  - Abdominal pain [None]
  - Food craving [None]
  - Headache [None]
  - Intentional overdose [None]
  - Hypoglycaemia [None]

NARRATIVE: CASE EVENT DATE: 20160118
